FAERS Safety Report 6156920-3 (Version None)
Quarter: 2009Q2

REPORT INFORMATION
  Report Type: 
  Country: None (occurrence: None)
  Receive Date: 20090416
  Receipt Date: 20090410
  Transmission Date: 20091009
  Serious: Yes (Other)
  Sender: FDA-Public Use
  Company Number: A0777897A

PATIENT
  Sex: Male

DRUGS (12)
  1. LAMICTAL [Suspect]
     Indication: BIPOLAR DISORDER
     Route: 048
  2. PAXIL [Suspect]
     Indication: DRUG USE FOR UNKNOWN INDICATION
     Route: 048
     Dates: start: 19940101
  3. KLONOPIN [Suspect]
     Indication: DRUG USE FOR UNKNOWN INDICATION
  4. LEXAPRO [Suspect]
     Indication: DEPRESSION
  5. BUPROPION HCL [Suspect]
     Indication: DRUG USE FOR UNKNOWN INDICATION
  6. HUMULIN R [Concomitant]
  7. SPIRIVA [Concomitant]
  8. PLAVIX [Concomitant]
  9. SIMVASTATIN [Concomitant]
  10. UNKNOWN MEDICATION [Concomitant]
  11. BLOOD PRESSURE MEDICATION [Concomitant]
  12. METOPROLOL TARTRATE [Concomitant]

REACTIONS (4)
  - AMNESIA [None]
  - DEPRESSION [None]
  - HALLUCINATION [None]
  - SOMNOLENCE [None]
